FAERS Safety Report 19503891 (Version 2)
Quarter: 2021Q4

REPORT INFORMATION
  Report Type: Spontaneous
  Country: DE (occurrence: DE)
  Receive Date: 20210707
  Receipt Date: 20211221
  Transmission Date: 20220303
  Serious: Yes (Hospitalization, Other)
  Sender: FDA-Public Use
  Company Number: DE-ADRED-06660-01

PATIENT
  Age: 86 Year
  Sex: Female
  Weight: 60 kg

DRUGS (11)
  1. METOPROLOL [Suspect]
     Active Substance: METOPROLOL
     Indication: Product used for unknown indication
     Dosage: 47.5 MG, Q12H (47.5 MG, 1-0-1-0, RETARD-TABLETTEN)
     Route: 048
  2. TRAMADOL [Concomitant]
     Active Substance: TRAMADOL
     Indication: Product used for unknown indication
     Dosage: 200 MG, QD (200 MG, 0-0-0-1, TABLETTEN)
     Route: 048
  3. APIXABAN [Concomitant]
     Active Substance: APIXABAN
     Indication: Product used for unknown indication
     Dosage: 5 MG, Q12H (5 MG, 1-0-1-0, TABLETTEN)
     Route: 048
  4. AMLODIPINE BESYLATE [Concomitant]
     Active Substance: AMLODIPINE BESYLATE
     Indication: Product used for unknown indication
     Dosage: 5 MG, QD (10 MG, 0.5-0-0-0, TABLETT)
     Route: 048
  5. CALCIUMCARBONAT [Concomitant]
     Indication: Product used for unknown indication
     Dosage: 1 DF, QD (500 MG, 0-1-0-0, BRAUSETABLETTEN)
     Route: 048
  6. ATORVASTATIN [Concomitant]
     Active Substance: ATORVASTATIN
     Indication: Product used for unknown indication
     Dosage: 20 MG, QD (20 MG, 0-0-1-0, TABLETTEN)
     Route: 048
  7. CANDESARTAN [Concomitant]
     Active Substance: CANDESARTAN
     Indication: Product used for unknown indication
     Dosage: 8 MG, Q12H (8 MG, 1-0-1-0, TABLETTEN)
     Route: 048
  8. TROSPIUM [Concomitant]
     Active Substance: TROSPIUM
     Indication: Product used for unknown indication
     Dosage: 30 MG, QD (30 MG, 0-0-0-1, TABLETTEN)
     Route: 048
  9. WOBENZYM [Concomitant]
     Indication: Product used for unknown indication
     Dosage: 1 DF, QD (72|91.87|40 MG, 0-0-0-1, TABLETTEN)
     Route: 048
  10. TORSEMIDE [Concomitant]
     Active Substance: TORSEMIDE
     Indication: Product used for unknown indication
     Dosage: 15 MG, QD (10 MG, 1-0.5-0-0, TABLETTEN)
     Route: 048
  11. METAMIZOL [Concomitant]
     Active Substance: METAMIZOLE SODIUM
     Indication: Product used for unknown indication
     Dosage: 500 MG, PRN (500 MG, BEI BEDARF, TABLETTEN)
     Route: 048

REACTIONS (2)
  - Cardiac failure [Unknown]
  - Dyspnoea [Unknown]

NARRATIVE: CASE EVENT DATE: 20210324
